FAERS Safety Report 5948403-8 (Version None)
Quarter: 2008Q4

REPORT INFORMATION
  Report Type: 
  Country: None (occurrence: None)
  Receive Date: 20081110
  Receipt Date: 20081110
  Transmission Date: 20090506
  Serious: Yes (Hospitalization, Other)
  Sender: FDA-Public Use
  Company Number: None

PATIENT
  Age: 29 Year
  Sex: Female
  Weight: 62.5964 kg

DRUGS (1)
  1. LORAZEPAM [Suspect]
     Indication: BIPOLAR DISORDER
     Dosage: 2 MG 1 A DAY
     Dates: start: 20080930, end: 20081104

REACTIONS (4)
  - DRUG HYPERSENSITIVITY [None]
  - GASTRITIS [None]
  - OESOPHAGEAL DISORDER [None]
  - ULCER [None]
